FAERS Safety Report 6909732-4 (Version None)
Quarter: 2010Q3

REPORT INFORMATION
  Report Type: 
  Country: None (occurrence: None)
  Receive Date: 20100806
  Receipt Date: 20100804
  Transmission Date: 20110219
  Serious: Yes (Hospitalization, Other)
  Sender: FDA-Public Use
  Company Number: US-ASTRAZENECA-2006UW07702

PATIENT
  Age: 42 Year
  Sex: Female
  Weight: 134.3 kg

DRUGS (42)
  1. SEROQUEL [Suspect]
     Indication: SCHIZOPHRENIA
     Route: 048
     Dates: start: 19970101, end: 20040101
  2. SEROQUEL [Suspect]
     Dosage: 300 MG TO 600 MG
     Route: 048
     Dates: start: 20030109, end: 20040204
  3. SEROQUEL [Suspect]
     Route: 048
     Dates: start: 20030311
  4. GEODON [Concomitant]
     Dosage: 80 TO 160 MG
     Dates: start: 20020101, end: 20060101
  5. RISPERDAL [Concomitant]
     Dosage: 4 MG TO 6 MG
     Dates: start: 19990518, end: 20060406
  6. HALOPERIDOL/HALDOL [Concomitant]
  7. LEVAQUIN [Concomitant]
     Route: 048
  8. VENTOLIN [Concomitant]
     Dosage: EVERY FOUR HOURS
     Route: 048
  9. MILK OF MAGNESIA TAB [Concomitant]
     Dosage: 30 ML, DAILY AS NEEDED
     Route: 048
  10. K-DUR [Concomitant]
     Route: 048
  11. SINGULAIR [Concomitant]
     Route: 048
  12. GLUCOVANCE [Concomitant]
     Dosage: STRENGTH: 5/500, DAILY
     Route: 048
  13. LASIX [Concomitant]
     Route: 048
  14. ZESTRIL [Concomitant]
     Route: 048
  15. LOPRESSOR [Concomitant]
     Dosage: 25-50 MG, BID
     Route: 048
  16. NORVASC [Concomitant]
     Route: 048
  17. AQUAPHOR [Concomitant]
     Route: 061
  18. KLONOPIN [Concomitant]
     Indication: ANXIETY
     Route: 048
  19. ACETAMINOPHEN [Concomitant]
     Dosage: 650 MG, EVERY 6 HRS AS  NEEDED
     Route: 048
  20. VISTARIL [Concomitant]
     Dosage: 25 MG, EVERY 6 HRS AS NEEDED
     Route: 048
  21. CATAPRES [Concomitant]
     Dosage: 0.1 MG, EVERY 4 HRS AS NEEDED
     Route: 048
  22. NOVOLIN R [Concomitant]
     Dosage: 8 UNIT, 1/2 HRS BEFORE MEAL
     Route: 058
  23. ANAPROX [Concomitant]
     Dosage: 275-500MG TWICE DAILY
     Route: 048
  24. FLEXERIL [Concomitant]
  25. DEPAKOTE [Concomitant]
     Indication: POSTPARTUM DEPRESSION
     Dosage: 250-500 MG, TWICE DAILY
     Route: 048
  26. ATENOLOL [Concomitant]
     Indication: HYPERTENSION
     Dosage: 25-100 MG DAILY
     Route: 048
  27. ARICEPT [Concomitant]
     Route: 048
  28. BACTROBAN [Concomitant]
     Dosage: DAILY ONCE
     Route: 061
  29. METFORMIN HCL [Concomitant]
     Indication: DIABETES MELLITUS
     Route: 048
  30. DIABETA [Concomitant]
     Route: 048
  31. PRANDIN [Concomitant]
     Route: 048
  32. ATIVAN [Concomitant]
     Dosage: 2 MG EVERY 6 HRS AS NEEDED
     Route: 048
  33. MOTRIN [Concomitant]
     Dosage: 600-800MG, 3 TIMES DAILY
     Route: 048
  34. LOSARTAN POTASSIUM [Concomitant]
     Route: 048
  35. SALMETEROL FLUTICASONE [Concomitant]
  36. THEOPHYLLINE [Concomitant]
     Route: 048
  37. AZITHROMYCIN [Concomitant]
  38. REMERON [Concomitant]
     Dosage: 15-30 MG
  39. PROZAC [Concomitant]
     Dosage: 20 MG DISPENSED
     Route: 048
  40. CELEBREX [Concomitant]
     Dosage: BID
     Route: 048
  41. CELEXA [Concomitant]
     Route: 048
     Dates: start: 20030311
  42. FLORENT [Concomitant]
     Dates: start: 20030311

REACTIONS (16)
  - ARTERIOSCLEROSIS CORONARY ARTERY [None]
  - ASTHMA [None]
  - BACK PAIN [None]
  - CELLULITIS [None]
  - CHEST PAIN [None]
  - CHRONIC OBSTRUCTIVE PULMONARY DISEASE [None]
  - DEMENTIA ALZHEIMER'S TYPE [None]
  - DIABETIC NEUROPATHY [None]
  - HYPERKERATOSIS [None]
  - ONYCHOMYCOSIS [None]
  - POLYSUBSTANCE DEPENDENCE [None]
  - SCHIZOPHRENIA [None]
  - SKIN FISSURES [None]
  - SLEEP APNOEA SYNDROME [None]
  - TYPE 2 DIABETES MELLITUS [None]
  - XEROSIS [None]
